FAERS Safety Report 8911926 (Version 1)
Quarter: 2012Q4

REPORT INFORMATION
  Report Type: 
  Country: US (occurrence: US)
  Receive Date: 20121116
  Receipt Date: 20121116
  Transmission Date: 20130627
  Serious: Yes (Hospitalization)
  Sender: FDA-Public Use
  Company Number: US-GENZYME-POMP-1002567

PATIENT
  Age: 59 Year
  Sex: Female

DRUGS (1)
  1. LUMIZYME [Suspect]
     Indication: GLYCOGEN STORAGE DISEASE TYPE II
     Dosage: 1700 mg, q2w
     Route: 042
     Dates: start: 20100825

REACTIONS (2)
  - Myocardial infarction [Not Recovered/Not Resolved]
  - Blood pressure abnormal [Not Recovered/Not Resolved]
